FAERS Safety Report 18363787 (Version 1)
Quarter: 2020Q4

REPORT INFORMATION
  Report Type: Report from Study
  Country: US (occurrence: US)
  Receive Date: 20201009
  Receipt Date: 20201009
  Transmission Date: 20210114
  Serious: No
  Sender: FDA-Public Use
  Company Number: US-TERSERA THERAPEUTICS LLC-US2019TSO237799

PATIENT

DRUGS (2)
  1. ROLAPITANT HYDROCHLORIDE [Suspect]
     Active Substance: ROLAPITANT
     Dosage: 180 MG, EVERY 2 WEEKS
     Dates: start: 20191018
  2. XPOVIO [Concomitant]
     Active Substance: SELINEXOR
     Dosage: 80 MG ONCE WEEKLY FOR 3 WEEKS
     Route: 048
     Dates: start: 20191018

REACTIONS (2)
  - Platelet count decreased [Unknown]
  - Drug ineffective [Unknown]
